FAERS Safety Report 4935454-5 (Version None)
Quarter: 2006Q1

REPORT INFORMATION
  Report Type: 
  Country: None (occurrence: None)
  Receive Date: 20060307
  Receipt Date: 20060223
  Transmission Date: 20060701
  Serious: Yes (Hospitalization)
  Sender: FDA-Public Use
  Company Number: CH-GLAXOSMITHKLINE-B0414380A

PATIENT
  Age: 48 Year
  Sex: Female

DRUGS (4)
  1. DEROXAT [Suspect]
     Indication: DEPRESSION
     Dosage: 20MG PER DAY
     Route: 048
     Dates: start: 20050801, end: 20051202
  2. SEROPRAM [Suspect]
     Indication: DEPRESSION
     Dosage: 20MG PER DAY
     Route: 048
     Dates: start: 20051203, end: 20051215
  3. BUPROPION HCL [Concomitant]
     Dosage: 150MG PER DAY
  4. SERTRALINE [Concomitant]
     Dosage: 50MG PER DAY

REACTIONS (3)
  - COGWHEEL RIGIDITY [None]
  - CROSS SENSITIVITY REACTION [None]
  - RESTLESS LEGS SYNDROME [None]
